FAERS Safety Report 18245865 (Version 1)
Quarter: 2020Q3

REPORT INFORMATION
  Report Type: Spontaneous
  Country: KE (occurrence: KE)
  Receive Date: 20200909
  Receipt Date: 20200909
  Transmission Date: 20201103
  Serious: Yes (Hospitalization, Other)
  Sender: FDA-Public Use
  Company Number: KE-HETERO-HET2020KE01019

PATIENT
  Age: 3 Year
  Sex: Male
  Weight: 13 kg

DRUGS (1)
  1. ABACAVIR + LAMIVUDINE [Suspect]
     Active Substance: ABACAVIR\LAMIVUDINE
     Indication: PRODUCT USED FOR UNKNOWN INDICATION
     Dosage: UNK, EACH BOTTLE CONTAINED 60 TABLETS, THAT IS, A TOTAL OF 250 TABLETS OR 15 G OF ABACAVIR AND 7.5 G
     Route: 048

REACTIONS (5)
  - Accidental overdose [Unknown]
  - Altered state of consciousness [Recovering/Resolving]
  - Lethargy [Recovering/Resolving]
  - Dehydration [Recovering/Resolving]
  - Tachycardia [Recovering/Resolving]
